FAERS Safety Report 5622015-8 (Version None)
Quarter: 2008Q1

REPORT INFORMATION
  Report Type: 
  Country: None (occurrence: None)
  Receive Date: 20080206
  Receipt Date: 20080121
  Transmission Date: 20080703
  Serious: Yes (Death, Hospitalization)
  Sender: FDA-Public Use
  Company Number: 8029529

PATIENT
  Age: 73 Year
  Sex: Female

DRUGS (2)
  1. PREDNISOLONE [Suspect]
     Indication: SYSTEMIC LUPUS ERYTHEMATOSUS
     Dosage: /D PO
     Route: 048
  2. METHOTREXATE [Suspect]
     Indication: SYSTEMIC LUPUS ERYTHEMATOSUS
     Dosage: 6 MG 1/W

REACTIONS (11)
  - BLOOD LACTATE DEHYDROGENASE INCREASED [None]
  - DISSEMINATED INTRAVASCULAR COAGULATION [None]
  - EPISTAXIS [None]
  - FIBRIN DEGRADATION PRODUCTS INCREASED [None]
  - HAEMOGLOBIN DECREASED [None]
  - METASTASES TO BONE MARROW [None]
  - NEUROENDOCRINE CARCINOMA OF THE SKIN [None]
  - PROTHROMBIN TIME RATIO INCREASED [None]
  - PURPURA [None]
  - RED BLOOD CELL COUNT DECREASED [None]
  - THROMBOCYTOPENIA [None]
